FAERS Safety Report 8101222-9 (Version None)
Quarter: 2012Q1

REPORT INFORMATION
  Report Type: 
  Country: None (occurrence: None)
  Receive Date: 20120129
  Receipt Date: 20110915
  Transmission Date: 20120608
  Serious: No
  Sender: FDA-Public Use
  Company Number: US-ABBOTT-11P-163-0856131-00

PATIENT
  Sex: Male
  Weight: 93.07 kg

DRUGS (6)
  1. HUMIRA [Suspect]
     Indication: RHEUMATOID ARTHRITIS
     Dates: start: 20100901, end: 20110701
  2. VALIUM [Concomitant]
     Indication: ANXIETY
  3. MOBIC [Concomitant]
     Indication: ARTHRITIS
  4. PANTOPRAZOLE [Concomitant]
     Indication: GASTRIC DISORDER
  5. FLOMAX [Concomitant]
     Indication: PRODUCT USED FOR UNKNOWN INDICATION
  6. TRAMADOL HCL [Concomitant]
     Indication: PAIN

REACTIONS (2)
  - HYPERTENSION [None]
  - NIGHT SWEATS [None]
